FAERS Safety Report 16576570 (Version 1)
Quarter: 2019Q3

REPORT INFORMATION
  Report Type: Spontaneous
  Country: DE (occurrence: DE)
  Receive Date: 20190716
  Receipt Date: 20190716
  Transmission Date: 20191004
  Serious: Yes (Hospitalization)
  Sender: FDA-Public Use
  Company Number: DE-TEVA-2019-DE-1077207

PATIENT
  Age: 80 Year
  Sex: Female

DRUGS (7)
  1. BISOPROLOL [Concomitant]
     Active Substance: BISOPROLOL
     Dosage: 5 MG, 0.5-0-0.5-0
  2. ASPIRIN. [Concomitant]
     Active Substance: ASPIRIN
     Dosage: 500 MG, 0-0-0.25-0
  3. NITRENDIPIN [Concomitant]
     Active Substance: NITRENDIPINE
     Dosage: 10 MG, 0.5-0-0.5-0
  4. TAVOR [Concomitant]
     Dosage: 1 MG, 0-0-0.5-0
  5. GEMCITABINE. [Suspect]
     Active Substance: GEMCITABINE
     Dosage: 0.75 G, ADMINISTERED ON 07.12.2017
  6. HYDROCHLOROTHIAZID/TRIAMTEREN [Concomitant]
     Dosage: 25|50 MG, 0.5-0-0-0
  7. VALSARTAN. [Concomitant]
     Active Substance: VALSARTAN
     Dosage: 80 MG, 0.5-0-1-0

REACTIONS (3)
  - Tachycardia [Unknown]
  - Asthenia [Unknown]
  - General physical health deterioration [Unknown]
